FAERS Safety Report 6633169-9 (Version None)
Quarter: 2010Q1

REPORT INFORMATION
  Report Type: 
  Country: None (occurrence: None)
  Receive Date: 20100312
  Receipt Date: 20100303
  Transmission Date: 20100710
  Serious: Yes (Other)
  Sender: FDA-Public Use
  Company Number: JP-PFIZER INC-2009314891

PATIENT
  Age: 76 Year
  Sex: Female

DRUGS (3)
  1. AZULFIDINE [Suspect]
     Dosage: UNK
     Route: 048
  2. METHOTREXATE SODIUM [Suspect]
     Dosage: 8MG/WEEK
  3. PREDNISOLONE [Suspect]
     Dosage: UNK
     Route: 048

REACTIONS (1)
  - CRYPTOCOCCOSIS [None]
